FAERS Safety Report 10920837 (Version 3)
Quarter: 2015Q2

REPORT INFORMATION
  Report Type: Spontaneous
  Country: US (occurrence: US)
  Receive Date: 20150317
  Receipt Date: 20150421
  Transmission Date: 20150821
  Serious: Yes (Death, Other)
  Sender: FDA-Public Use
  Company Number: US-ASTRAZENECA-2014SE85515

PATIENT
  Age: 21145 Day
  Sex: Male
  Weight: 96.2 kg

DRUGS (22)
  1. BYETTA [Suspect]
     Active Substance: EXENATIDE
     Route: 058
     Dates: start: 20120129
  2. ACTIGALL/URSODIOL [Concomitant]
     Route: 048
     Dates: start: 20121106
  3. MULTIVITAMIN [Concomitant]
     Active Substance: VITAMINS
     Route: 048
  4. JANUMET [Suspect]
     Active Substance: METFORMIN HYDROCHLORIDE\SITAGLIPTIN PHOSPHATE
     Dosage: 50/1000 MG TWO TIMES A DAY
     Route: 048
     Dates: start: 20100608
  5. ATIVAN/LORAZEPAM [Concomitant]
  6. BYETTA [Suspect]
     Active Substance: EXENATIDE
     Dosage: UNK
     Route: 065
     Dates: start: 20111111, end: 20120129
  7. JANUMET [Suspect]
     Active Substance: METFORMIN HYDROCHLORIDE\SITAGLIPTIN PHOSPHATE
     Dosage: 50/1000 MG TWO TIMES A DAY
     Route: 048
     Dates: start: 20120127
  8. LANTUS [Concomitant]
     Active Substance: INSULIN GLARGINE
     Dosage: 40 UNITS EVERY NIGHT
     Route: 058
     Dates: start: 20120221
  9. FENTANYL. [Concomitant]
     Active Substance: FENTANYL
     Dosage: 25-50 MCG Q2H PRN
  10. ACTOS [Concomitant]
     Active Substance: PIOGLITAZONE HYDROCHLORIDE
     Route: 048
     Dates: start: 20021120
  11. ASPIRIN. [Concomitant]
     Active Substance: ASPIRIN
     Route: 048
  12. LOVENOX [Concomitant]
     Active Substance: ENOXAPARIN SODIUM
     Route: 058
     Dates: start: 20121107
  13. ATACAND [Concomitant]
     Active Substance: CANDESARTAN CILEXETIL
     Route: 048
     Dates: start: 20021007
  14. HYDROCODONE [Concomitant]
     Active Substance: HYDROCODONE
     Route: 048
  15. JANUMET [Suspect]
     Active Substance: METFORMIN HYDROCHLORIDE\SITAGLIPTIN PHOSPHATE
     Dosage: UNK
     Route: 065
     Dates: start: 20090609, end: 20120127
  16. BYETTA [Suspect]
     Active Substance: EXENATIDE
     Route: 058
     Dates: start: 20111111
  17. LIPITOR [Concomitant]
     Active Substance: ATORVASTATIN CALCIUM
     Route: 048
     Dates: start: 20020909
  18. METFORMIN [Concomitant]
     Active Substance: METFORMIN HYDROCHLORIDE
     Route: 048
     Dates: start: 20081112
  19. HYDROXYZINE [Concomitant]
     Active Substance: HYDROXYZINE\HYDROXYZINE HYDROCHLORIDE
  20. JANUMET [Suspect]
     Active Substance: METFORMIN HYDROCHLORIDE\SITAGLIPTIN PHOSPHATE
     Dosage: 50/1000 MG TWO TIMES A DAY
     Route: 048
     Dates: start: 20110614
  21. LISINOPRIL. [Concomitant]
     Active Substance: LISINOPRIL
     Route: 048
     Dates: start: 20101008
  22. ZOCOR/ SIMVASTATIN [Concomitant]
     Dates: start: 20081112

REACTIONS (6)
  - Respiratory failure [Fatal]
  - Metastases to lung [Unknown]
  - Jaundice [Unknown]
  - Metastases to liver [Unknown]
  - Pancreatic carcinoma metastatic [Fatal]
  - Metastases to lymph nodes [Unknown]

NARRATIVE: CASE EVENT DATE: 20121029
